FAERS Safety Report 6206347-0 (Version None)
Quarter: 2009Q2

REPORT INFORMATION
  Report Type: 
  Country: None (occurrence: None)
  Receive Date: 20090528
  Receipt Date: 20090521
  Transmission Date: 20091009
  Serious: Yes (Hospitalization, Other)
  Sender: FDA-Public Use
  Company Number: PHHY2009NL19723

PATIENT
  Sex: Female
  Weight: 62 kg

DRUGS (1)
  1. EXELON [Suspect]
     Indication: DEMENTIA ALZHEIMER'S TYPE
     Dosage: 2 DD, 3 MG
     Route: 048
     Dates: start: 20090101

REACTIONS (5)
  - ARRHYTHMIA [None]
  - ASTHENIA [None]
  - COMA [None]
  - HYPOGLYCAEMIA [None]
  - VISUAL ACUITY REDUCED [None]
